FAERS Safety Report 17056170 (Version 4)
Quarter: 2025Q4

REPORT INFORMATION
  Report Type: Spontaneous
  Country: US (occurrence: US)
  Receive Date: 20191121
  Receipt Date: 20251110
  Transmission Date: 20260118
  Serious: Yes (Other)
  Sender: AUROBINDO
  Company Number: US-AUROBINDO-AUR-APL-2019-073445

PATIENT
  Age: 56 Year
  Sex: Female

DRUGS (4)
  1. ARGATROBAN [Suspect]
     Active Substance: ARGATROBAN
     Indication: Thrombocytopenia
     Dosage: UNK
     Route: 065
  2. MEROPENEM [Suspect]
     Active Substance: MEROPENEM
     Indication: Sinusitis
     Dosage: UNK
     Route: 065
  3. WARFARIN SODIUM [Suspect]
     Active Substance: WARFARIN SODIUM
     Indication: Platelet count decreased
     Dosage: UNK
     Route: 065
  4. HEPARIN [Suspect]
     Active Substance: HEPARIN SODIUM
     Indication: Deep vein thrombosis
     Dosage: UNK
     Route: 065

REACTIONS (2)
  - International normalised ratio increased [Recovering/Resolving]
  - Skin necrosis [Unknown]
